FAERS Safety Report 8333156-9 (Version None)
Quarter: 2012Q2

REPORT INFORMATION
  Report Type: 
  Country: None (occurrence: None)
  Receive Date: 20120503
  Receipt Date: 20120426
  Transmission Date: 20120825
  Serious: Yes (Hospitalization)
  Sender: FDA-Public Use
  Company Number: US-PFIZER INC-2012104004

PATIENT
  Sex: Female

DRUGS (2)
  1. AROMASIN [Suspect]
     Dosage: UNK
  2. NORVASC [Suspect]
     Dosage: UNK

REACTIONS (5)
  - BREAST CANCER [None]
  - LIP SWELLING [None]
  - SWOLLEN TONGUE [None]
  - GOUT [None]
  - LUNG NEOPLASM MALIGNANT [None]
